FAERS Safety Report 11793350 (Version 2)
Quarter: 2017Q2

REPORT INFORMATION
  Report Type: Spontaneous
  Country: US (occurrence: US)
  Receive Date: 20151202
  Receipt Date: 20170601
  Transmission Date: 20170829
  Serious: Yes (Other)
  Sender: FDA-Public Use
  Company Number: US-BAYER-2015-478467

PATIENT
  Age: 26 Year
  Sex: Female

DRUGS (2)
  1. MIRENA [Suspect]
     Active Substance: LEVONORGESTREL
     Dosage: 20 MCG/24HR, CONT
     Route: 015
     Dates: start: 200701
  2. MIRENA [Suspect]
     Active Substance: LEVONORGESTREL
     Dosage: 20 MCG/24HR, CONT
     Route: 015
     Dates: start: 201004, end: 20101112

REACTIONS (6)
  - Diplopia [None]
  - Headache [None]
  - Dizziness [None]
  - Idiopathic intracranial hypertension [None]
  - Vision blurred [None]
  - Papilloedema [None]

NARRATIVE: CASE EVENT DATE: 200910
